FAERS Safety Report 9436753 (Version 1)
Quarter: 2013Q3

REPORT INFORMATION
  Report Type: Spontaneous
  Country: SE (occurrence: SE)
  Receive Date: 20130802
  Receipt Date: 20130802
  Transmission Date: 20140515
  Serious: Yes (Other)
  Sender: FDA-Public Use
  Company Number: SE-JNJFOC-20130716246

PATIENT
  Sex: 0

DRUGS (8)
  1. ABCIXIMAB [Suspect]
     Indication: PERCUTANEOUS CORONARY INTERVENTION
     Dosage: INTRAVENOUS BOLUS
     Route: 042
  2. ABCIXIMAB [Suspect]
     Indication: PERCUTANEOUS CORONARY INTERVENTION
     Dosage: DURING 12 HOUR INFUSION
     Route: 042
  3. ABCIXIMAB [Suspect]
     Indication: MYOCARDIAL INFARCTION
     Dosage: INTRAVENOUS BOLUS
     Route: 042
  4. ABCIXIMAB [Suspect]
     Indication: MYOCARDIAL INFARCTION
     Dosage: DURING 12 HOUR INFUSION
     Route: 042
  5. ASPIRIN [Suspect]
     Indication: PRODUCT USED FOR UNKNOWN INDICATION
     Route: 048
  6. UNFRACTIONATED HEPARIN [Suspect]
     Indication: PERCUTANEOUS CORONARY INTERVENTION
     Dosage: 50 U/KG
     Route: 042
  7. CLOPIDOGREL [Suspect]
     Indication: PERCUTANEOUS CORONARY INTERVENTION
     Dosage: LOADING DOSE
     Route: 065
  8. IODIXANOL [Concomitant]
     Indication: PRODUCT USED FOR UNKNOWN INDICATION
     Dosage: LOADING DOSE
     Route: 065

REACTIONS (1)
  - Ischaemia [Unknown]
